FAERS Safety Report 7356015-7 (Version None)
Quarter: 2011Q1

REPORT INFORMATION
  Report Type: 
  Country: None (occurrence: None)
  Receive Date: 20110316
  Receipt Date: 20110307
  Transmission Date: 20110831
  Serious: Yes (Death)
  Sender: FDA-Public Use
  Company Number: US-CELGENEUS-163-21880-11021521

PATIENT
  Sex: Male

DRUGS (12)
  1. AVELOX [Concomitant]
     Route: 065
     Dates: end: 20110118
  2. DUONEB [Concomitant]
     Route: 065
  3. REVLIMID [Suspect]
     Indication: MULTIPLE MYELOMA
     Dosage: 20 MILLIGRAM
     Route: 048
     Dates: start: 20110101
  4. SENNA [Concomitant]
     Route: 065
  5. DEXAMETHASONE [Concomitant]
     Dosage: 5 MILLIGRAM
     Route: 065
  6. FLONASE [Concomitant]
     Route: 045
  7. PROTONIX [Concomitant]
     Route: 065
  8. GABAPENTIN [Concomitant]
     Route: 065
  9. METHADONE [Concomitant]
     Indication: PAIN
     Dosage: 2.5 MILLIGRAM
     Route: 065
  10. HEPARIN [Concomitant]
     Indication: PROPHYLAXIS
     Route: 058
  11. PHENAZOPYRIDINE HCL TAB [Concomitant]
     Route: 065
  12. NYSTATIN [Concomitant]
     Route: 065

REACTIONS (1)
  - PNEUMONIA [None]
